FAERS Safety Report 14669033 (Version 1)
Quarter: 2018Q1

REPORT INFORMATION
  Report Type: Spontaneous
  Country: US (occurrence: US)
  Receive Date: 20180321
  Receipt Date: 20180321
  Transmission Date: 20180509
  Serious: Yes (Life-Threatening, Hospitalization)
  Sender: FDA-Public Use
  Company Number: None

PATIENT
  Age: 41 Year
  Sex: Female
  Weight: 68.4 kg

DRUGS (1)
  1. MULTIHANCE [Suspect]
     Active Substance: GADOBENATE DIMEGLUMINE
     Indication: MULTIPLE SCLEROSIS
     Dosage: ?          OTHER FREQUENCY:PER PROTOCOL;?
     Route: 042
     Dates: start: 20180319

REACTIONS (3)
  - Foaming at mouth [None]
  - Eye movement disorder [None]
  - Cardio-respiratory arrest [None]

NARRATIVE: CASE EVENT DATE: 20180319
